FAERS Safety Report 17486865 (Version 1)
Quarter: 2020Q1

REPORT INFORMATION
  Report Type: Spontaneous
  Country: US (occurrence: US)
  Receive Date: 20200219
  Receipt Date: 20200219
  Transmission Date: 20200409
  Serious: No
  Sender: FDA-Public Use
  Company Number: None

PATIENT
  Age: 6 Year
  Sex: Female

DRUGS (1)
  1. POMALYST [Suspect]
     Active Substance: POMALIDOMIDE
     Indication: PLASMA CELL MYELOMA
     Dosage: ?          OTHER FREQUENCY:QD X21/28 DAYS; ORAL?
     Route: 048
     Dates: start: 20190122

REACTIONS (6)
  - Therapy cessation [None]
  - Chills [None]
  - Rash pruritic [None]
  - Pyrexia [None]
  - Rash [None]
  - Malaise [None]

NARRATIVE: CASE EVENT DATE: 20200115
